FAERS Safety Report 11759746 (Version 1)
Quarter: 2015Q4

REPORT INFORMATION
  Report Type: Spontaneous
  Country: US (occurrence: US)
  Receive Date: 20151120
  Receipt Date: 20151120
  Transmission Date: 20160304
  Serious: No
  Sender: FDA-Public Use
  Company Number: US-JNJFOC-20151015039

PATIENT
  Age: 50 Year
  Sex: Female
  Weight: 64.86 kg

DRUGS (3)
  1. MENS ROGAINE EXTRA STRENGTH [Suspect]
     Active Substance: MINOXIDIL
     Indication: ALOPECIA
     Dosage: 1/2 CAPFUL
     Route: 061
     Dates: start: 20150924
  2. MENS ROGAINE EXTRA STRENGTH [Suspect]
     Active Substance: MINOXIDIL
     Indication: ALOPECIA
     Dosage: 1/2 CAPFUL
     Route: 061
  3. ALL OTHER THERAPEUTIC PRODUCTS [Concomitant]
     Active Substance: UNSPECIFIED INGREDIENT
     Indication: ALOPECIA
     Dosage: ONE-TWO MONTHS
     Route: 065

REACTIONS (5)
  - Alopecia [Not Recovered/Not Resolved]
  - Nasopharyngitis [Unknown]
  - Wrong patient received medication [Unknown]
  - Drug administered at inappropriate site [Unknown]
  - Headache [Recovered/Resolved]
